FAERS Safety Report 5049438-2 (Version None)
Quarter: 2006Q3

REPORT INFORMATION
  Report Type: 
  Country: None (occurrence: None)
  Receive Date: 20060711
  Receipt Date: 20060711
  Transmission Date: 20061208
  Serious: Yes (Hospitalization)
  Sender: FDA-Public Use
  Company Number: None

PATIENT
  Sex: Female
  Weight: 63.05 kg

DRUGS (15)
  1. CARBOPLATIN [Suspect]
     Indication: SMALL CELL LUNG CANCER METASTATIC
     Dosage: 198.4MG  DAY 1  IV
     Route: 042
     Dates: start: 20031219, end: 20040206
  2. CPT-11 [Suspect]
     Indication: SMALL CELL LUNG CANCER METASTATIC
     Dosage: 64MG   DAYS 1 + 9   IV
     Route: 042
     Dates: start: 20031219, end: 20040206
  3. TOPROL-XL [Concomitant]
  4. SYNTHROID [Concomitant]
  5. PREMARIN [Concomitant]
  6. CELEBREX [Concomitant]
  7. LIPITOR [Concomitant]
  8. ASPIRIN [Concomitant]
  9. COMBIVENT [Concomitant]
  10. ADVAIR DISK [Concomitant]
  11. DURAGESIC-100 [Concomitant]
  12. DEMECLOCYCLINE [Concomitant]
  13. MSO4 IMMEDIATE RELEASE [Concomitant]
  14. LORAZEPAM [Concomitant]
  15. SENNA [Concomitant]

REACTIONS (10)
  - ABDOMINAL PAIN LOWER [None]
  - BONE MARROW FAILURE [None]
  - CONSTIPATION [None]
  - DIARRHOEA [None]
  - FAECALOMA [None]
  - HYPOVOLAEMIA [None]
  - LEUKOPENIA [None]
  - NEUTROPENIA [None]
  - PERFORMANCE STATUS DECREASED [None]
  - SYNCOPE [None]
